FAERS Safety Report 23995535 (Version 1)
Quarter: 2024Q2

REPORT INFORMATION
  Report Type: Spontaneous
  Country: BG (occurrence: BG)
  Receive Date: 20240620
  Receipt Date: 20240620
  Transmission Date: 20240716
  Serious: Yes (Other)
  Sender: FDA-Public Use
  Company Number: BG-JNJFOC-20240601351

PATIENT
  Age: 62 Year
  Sex: Female

DRUGS (4)
  1. BENDAMUSTINE HYDROCHLORIDE [Suspect]
     Active Substance: BENDAMUSTINE HYDROCHLORIDE
     Indication: Lymphoma
     Dosage: 100 MILLIGRAM (AT DAYS 2 AND 3,SOLUTION FOR INFUSION)
     Route: 042
  2. DEXAMETHASONE [Suspect]
     Active Substance: DEXAMETHASONE
     Indication: Lymphoma
     Dosage: 20 MILLIGRAM, QD (FOR 4 DAYS)
     Route: 065
  3. RITUXIMAB [Suspect]
     Active Substance: RITUXIMAB
     Indication: Lymphoma
     Dosage: 600 MILLIGRAM (AT DAY 1)
     Route: 065
  4. IBRUTINIB [Suspect]
     Active Substance: IBRUTINIB
     Indication: Lymphoma
     Dosage: 420 MILLIGRAM, QD (3 TABLETS/DAY)
     Route: 048
     Dates: start: 202304

REACTIONS (4)
  - Neutropenia [Unknown]
  - Anaemia [Unknown]
  - Protein total increased [Unknown]
  - Off label use [Unknown]
